FAERS Safety Report 24848433 (Version 2)
Quarter: 2025Q1

REPORT INFORMATION
  Report Type: Spontaneous
  Country: MY (occurrence: MY)
  Receive Date: 20250116
  Receipt Date: 20250304
  Transmission Date: 20250409
  Serious: No
  Sender: JOHNSON AND JOHNSON
  Company Number: MY-JNJFOC-20241271525

PATIENT
  Sex: Male

DRUGS (1)
  1. TREMFYA [Suspect]
     Active Substance: GUSELKUMAB
     Indication: Psoriasis
     Dosage: FREQUENCY:8 (UNIT UNSPECIFIED)
     Route: 058
     Dates: start: 20241220

REACTIONS (2)
  - Incorrect dose administered [Unknown]
  - Needle issue [Unknown]

NARRATIVE: CASE EVENT DATE: 20241220
